FAERS Safety Report 7985759-9 (Version None)
Quarter: 2011Q4

REPORT INFORMATION
  Report Type: 
  Country: None (occurrence: None)
  Receive Date: 20111216
  Receipt Date: 20111205
  Transmission Date: 20120403
  Serious: Yes (Other)
  Sender: FDA-Public Use
  Company Number: RO-ELI_LILLY_AND_COMPANY-RO201112003815

PATIENT

DRUGS (1)
  1. DROTRECOGIN ALFA (ACTIVATED) [Suspect]
     Indication: SEPSIS

REACTIONS (1)
  - THROMBOCYTOPENIA [None]
